FAERS Safety Report 4489812-6 (Version None)
Quarter: 2004Q4

REPORT INFORMATION
  Report Type: 
  Country: None (occurrence: None)
  Receive Date: 20041026
  Receipt Date: 20040831
  Transmission Date: 20050328
  Serious: Yes (Death)
  Sender: FDA-Public Use
  Company Number: M2004-1569

PATIENT
  Age: 49 Year
  Sex: Male

DRUGS (9)
  1. FLUCONAZOLE, UNKNOWN MANUFACTURER [Suspect]
     Indication: OESOPHAGEAL CANDIDIASIS
     Dosage: 200 MG
  2. SIROLIMUS, UNKNOWN MANUFACTURER [Suspect]
     Indication: IMMUNOSUPPRESSION
     Dosage: 15 MG ON 3 CONS. DAYS
  3. CYCLOSPORINE [Concomitant]
  4. MYCOPHENOLATE MOFETIL [Concomitant]
  5. PREDNISOLONE [Concomitant]
  6. RANITIDINE [Concomitant]
  7. ISOSORBIDE DINITRATE [Concomitant]
  8. NIFEDIPINE [Concomitant]
  9. CARVEDILOL [Concomitant]

REACTIONS (5)
  - CARDIO-RESPIRATORY ARREST [None]
  - GENERAL PHYSICAL HEALTH DETERIORATION [None]
  - HYPERKALAEMIA [None]
  - IMMUNOSUPPRESSANT DRUG LEVEL INCREASED [None]
  - MULTI-ORGAN FAILURE [None]
